FAERS Safety Report 4339931-X (Version None)
Quarter: 2004Q2

REPORT INFORMATION
  Report Type: 
  Country: None (occurrence: None)
  Receive Date: 20040416
  Receipt Date: 20040415
  Transmission Date: 20050107
  Serious: Yes (Hospitalization)
  Sender: FDA-Public Use
  Company Number: US-GLAXOSMITHKLINE-A0507258A

PATIENT
  Age: 97 Year
  Sex: Female

DRUGS (4)
  1. LAMICTAL [Suspect]
     Route: 048
  2. SINEMET [Concomitant]
  3. BLOOD PRESSURE MED [Concomitant]
  4. ANTIBIOTIC [Concomitant]

REACTIONS (2)
  - ABNORMAL BEHAVIOUR [None]
  - ABNORMAL DREAMS [None]
